FAERS Safety Report 4397785-X (Version None)
Quarter: 2004Q3

REPORT INFORMATION
  Report Type: 
  Country: None (occurrence: None)
  Receive Date: 20040713
  Receipt Date: 20040628
  Transmission Date: 20050211
  Serious: Yes (Hospitalization)
  Sender: FDA-Public Use
  Company Number: 200681

PATIENT
  Age: 61 Year
  Sex: Female
  Weight: 92.5338 kg

DRUGS (2)
  1. AVONEX [Suspect]
     Indication: MULTIPLE SCLEROSIS
     Dosage: 30. MCG QW IM
     Route: 030
     Dates: start: 20020101
  2. AVONEX [Suspect]
     Indication: MULTIPLE SCLEROSIS
     Dosage: 30 MCG QW IM
     Route: 030

REACTIONS (3)
  - COMMUNICATION DISORDER [None]
  - CYSTITIS [None]
  - LOWER LIMB FRACTURE [None]
